FAERS Safety Report 7807587-7 (Version None)
Quarter: 2011Q4

REPORT INFORMATION
  Report Type: 
  Country: None (occurrence: None)
  Receive Date: 20111011
  Receipt Date: 20111003
  Transmission Date: 20120403
  Serious: No
  Sender: FDA-Public Use
  Company Number: US-B.I. PHARMACEUTICALS,INC./RIDGEFIELD-2011-BP-21950BP

PATIENT
  Sex: Male

DRUGS (9)
  1. FOLIC ACID [Concomitant]
     Indication: LUNG NEOPLASM MALIGNANT
     Dosage: 1 MG
     Route: 048
     Dates: start: 20080901
  2. ADVAIR DISKUS 100/50 [Concomitant]
     Indication: DYSPNOEA
     Route: 055
     Dates: start: 20100101
  3. PRADAXA [Suspect]
     Indication: ATRIAL FIBRILLATION
     Dosage: 150 MG
     Route: 048
     Dates: start: 20110401
  4. METOPROLOL TARTRATE [Concomitant]
     Dosage: 150 MG
     Route: 048
     Dates: start: 20110701
  5. SYNTHROID [Concomitant]
     Dosage: 88 MEQ
     Route: 048
     Dates: start: 20110801
  6. SYNTHROID [Concomitant]
     Indication: THYROID DISORDER
     Dosage: 50 MEQ
     Route: 048
     Dates: end: 20110801
  7. SIMVASTATIN [Concomitant]
     Indication: BLOOD CHOLESTEROL INCREASED
     Dosage: 20 MG
     Route: 048
     Dates: start: 19990101
  8. METOPROLOL TARTRATE [Concomitant]
     Indication: ATRIAL FIBRILLATION
     Dosage: 300 MG
     Route: 048
     Dates: start: 19990101, end: 20110701
  9. AMIODARONE HCL [Concomitant]
     Indication: ATRIAL FIBRILLATION
     Dosage: 200 MG
     Route: 048
     Dates: start: 20080101

REACTIONS (3)
  - DIZZINESS [None]
  - BLOOD THYROID STIMULATING HORMONE INCREASED [None]
  - BLOOD THYROID STIMULATING HORMONE ABNORMAL [None]
